FAERS Safety Report 17346719 (Version 1)
Quarter: 2020Q1

REPORT INFORMATION
  Report Type: Report from Study
  Country: US (occurrence: US)
  Receive Date: 20200129
  Receipt Date: 20200129
  Transmission Date: 20200409
  Serious: No
  Sender: FDA-Public Use
  Company Number: US-EXELIXIS-CABO-19023532

PATIENT
  Sex: Female

DRUGS (2)
  1. CABOMETYX [Suspect]
     Active Substance: CABOZANTINIB S-MALATE
     Indication: BONE CANCER
     Dosage: 60 MG, QD (2 HOURS AFTER BREAKFAST)
     Dates: start: 20190811
  2. DULOXETINE. [Concomitant]
     Active Substance: DULOXETINE
     Dosage: UNK

REACTIONS (7)
  - Blister [Not Recovered/Not Resolved]
  - Fatigue [Recovered/Resolved]
  - Stomatitis [Recovering/Resolving]
  - Somnolence [Recovered/Resolved]
  - Dry mouth [Recovering/Resolving]
  - Pain in extremity [Not Recovered/Not Resolved]
  - Off label use [Unknown]
